FAERS Safety Report 6423027-7 (Version None)
Quarter: 2009Q4

REPORT INFORMATION
  Report Type: 
  Country: None (occurrence: None)
  Receive Date: 20091102
  Receipt Date: 20091019
  Transmission Date: 20100525
  Serious: Yes (Hospitalization)
  Sender: FDA-Public Use
  Company Number: PHHY2009CA33983

PATIENT
  Sex: Female

DRUGS (3)
  1. EXJADE [Suspect]
     Indication: MYELODYSPLASTIC SYNDROME
     Dosage: 1250 MG/DAY
     Route: 048
     Dates: start: 20090801
  2. EXJADE [Suspect]
     Indication: IRON OVERLOAD
  3. MACROBID [Concomitant]

REACTIONS (5)
  - DIARRHOEA [None]
  - KIDNEY ENLARGEMENT [None]
  - MUSCLE SPASMS [None]
  - NAUSEA [None]
  - RENAL FAILURE [None]
